FAERS Safety Report 7451065-4 (Version None)
Quarter: 2011Q2

REPORT INFORMATION
  Report Type: 
  Country: None (occurrence: None)
  Receive Date: 20110502
  Receipt Date: 20110426
  Transmission Date: 20111010
  Serious: Yes (Hospitalization, Other)
  Sender: FDA-Public Use
  Company Number: FR-PFIZER INC-2011019270

PATIENT
  Age: 56 Year
  Sex: Male

DRUGS (6)
  1. APROVEL [Concomitant]
     Dosage: UNK
  2. LASIX [Concomitant]
     Dosage: UNK
  3. ROCALTROL [Concomitant]
     Dosage: UNK
  4. NEBIVOLOL [Concomitant]
  5. KARDEGIC [Concomitant]
     Dosage: UNK
  6. TAHOR [Suspect]
     Dosage: UNK
     Dates: start: 20101201, end: 20110101

REACTIONS (7)
  - TINNITUS [None]
  - ASCITES [None]
  - HEPATOCELLULAR INJURY [None]
  - RENAL FAILURE ACUTE [None]
  - ABDOMINAL PAIN [None]
  - CYTOLYTIC HEPATITIS [None]
  - JAUNDICE [None]
